FAERS Safety Report 8869145 (Version 1)
Quarter: 2012Q4

REPORT INFORMATION
  Report Type: Spontaneous
  Country: DE (occurrence: None)
  Receive Date: 20121023
  Receipt Date: 20121023
  Transmission Date: 20130627
  Serious: Yes (Other)
  Sender: FDA-Public Use
  Company Number: GER/GER/12/0026208

PATIENT
  Sex: Female

DRUGS (1)
  1. SIMVABETA [Suspect]
     Indication: DRUG USE FOR UNKNOWN INDICATION
     Dosage: 20 mg, 1 in 1 D, Oral
     Route: 048

REACTIONS (12)
  - Hypoaesthesia [None]
  - Paraesthesia [None]
  - Neuropathy peripheral [None]
  - Pruritus [None]
  - Rash [None]
  - Myopathy [None]
  - Myalgia [None]
  - Sleep disorder [None]
  - Nightmare [None]
  - Depression [None]
  - Dyspnoea [None]
  - Cough [None]
